FAERS Safety Report 9589687 (Version 1)
Quarter: 2013Q4

REPORT INFORMATION
  Report Type: Spontaneous
  Country: US (occurrence: US)
  Receive Date: 20131003
  Receipt Date: 20131003
  Transmission Date: 20140711
  Serious: No
  Sender: FDA-Public Use
  Company Number: US-AMGEN-USASP2012071878

PATIENT
  Age: 50 Year
  Sex: Female

DRUGS (6)
  1. ENBREL [Suspect]
     Indication: PSORIATIC ARTHROPATHY
     Dosage: 50 MG, QWK
     Route: 058
     Dates: start: 20121012
  2. CALCIUM [Concomitant]
     Dosage: 500 MG, UNK
  3. VITAMIN D                          /00107901/ [Concomitant]
     Dosage: 2000 UNIT, UNK
  4. MULTIVITAMINS, PLAIN [Concomitant]
     Dosage: UNK
  5. POTASSIUM GLUCONATE [Concomitant]
     Dosage: 595 MG, UNK
  6. MEDROL                             /00049601/ [Concomitant]
     Dosage: UNK

REACTIONS (4)
  - Injection site reaction [Recovering/Resolving]
  - Injection site erythema [Recovering/Resolving]
  - Injection site swelling [Recovering/Resolving]
  - Injection site pruritus [Recovering/Resolving]
